FAERS Safety Report 23217885 (Version 1)
Quarter: 2023Q4

REPORT INFORMATION
  Report Type: Spontaneous
  Country: None (occurrence: CH)
  Receive Date: 20231122
  Receipt Date: 20231122
  Transmission Date: 20240110
  Serious: Yes (Other)
  Sender: FDA-Public Use
  Company Number: CH-Ascend Therapeutics US, LLC-2148555

PATIENT
  Age: 70 Year
  Sex: Female
  Weight: 70 kg

DRUGS (6)
  1. ESTROGEL [Suspect]
     Active Substance: ESTRADIOL
     Indication: Hot flush
     Route: 003
     Dates: start: 20231025, end: 20231027
  2. ESTRADIOL [Suspect]
     Active Substance: ESTRADIOL
     Route: 003
  3. XARELTO [Concomitant]
     Active Substance: RIVAROXABAN
     Route: 065
  4. Cansartan-Mepha Plus(HYDROCHLOROTHIAZIDE, CANDESARTAN) [Concomitant]
     Route: 065
  5. Esomeprazol-Mepha(ESOMEPRAZOLE MAGNESIUM) [Concomitant]
     Route: 065
  6. EUTHYROX [Concomitant]
     Active Substance: LEVOTHYROXINE SODIUM
     Route: 065

REACTIONS (5)
  - Feeling hot [Recovered/Resolved]
  - Pain in extremity [Recovered/Resolved]
  - Pain [Recovered/Resolved]
  - Gait disturbance [Recovered/Resolved]
  - Contraindicated product administered [None]
